FAERS Safety Report 16382135 (Version 2)
Quarter: 2019Q2

REPORT INFORMATION
  Report Type: Spontaneous
  Country: LT (occurrence: LT)
  Receive Date: 20190603
  Receipt Date: 20190618
  Transmission Date: 20190711
  Serious: Yes (Other)
  Sender: FDA-Public Use
  Company Number: LT-BAUSCH-BL-2019-015621

PATIENT
  Age: 32 Year
  Sex: Female

DRUGS (7)
  1. PIMECROLIMUS. [Suspect]
     Active Substance: PIMECROLIMUS
     Indication: SWELLING OF EYELID
  2. HYALURONIC ACID [Concomitant]
     Active Substance: HYALURONIC ACID
     Indication: PRODUCT USED FOR UNKNOWN INDICATION
  3. BANEOCIN [Concomitant]
     Indication: PRODUCT USED FOR UNKNOWN INDICATION
  4. PIMECROLIMUS. [Suspect]
     Active Substance: PIMECROLIMUS
     Indication: RASH
     Route: 061
     Dates: start: 201810
  5. FISH OIL [Concomitant]
     Active Substance: FISH OIL
     Indication: PRODUCT USED FOR UNKNOWN INDICATION
  6. VITAMIN D [Concomitant]
     Active Substance: VITAMIN D NOS
     Indication: PRODUCT USED FOR UNKNOWN INDICATION
  7. SHARK LIVER OIL [Concomitant]
     Active Substance: SHARK LIVER OIL
     Indication: PRODUCT USED FOR UNKNOWN INDICATION

REACTIONS (1)
  - Eczema herpeticum [Recovering/Resolving]

NARRATIVE: CASE EVENT DATE: 201810
